FAERS Safety Report 6248795-9 (Version None)
Quarter: 2009Q2

REPORT INFORMATION
  Report Type: 
  Country: None (occurrence: None)
  Receive Date: 20090629
  Receipt Date: 20090619
  Transmission Date: 20091009
  Serious: Yes (Other)
  Sender: FDA-Public Use
  Company Number: US-ROCHE-639736

PATIENT
  Age: 73 Year
  Sex: Female

DRUGS (5)
  1. BONIVA [Suspect]
     Indication: DRUG USE FOR UNKNOWN INDICATION
     Dosage: LAST RECEIVED ON 1 JUNE 2009
     Route: 048
     Dates: start: 20090201
  2. NEXIUM [Concomitant]
     Dosage: STARTED BEFORE START OF IBANDRONIC ACID
  3. CRESTOR [Concomitant]
     Dosage: STARTED BEFORE START OF IBANDRONIC ACID
  4. LYRICA [Concomitant]
     Dosage: STARTED BEFORE START OF IBANDRONIC ACID
  5. METAMUCIL [Concomitant]
     Dosage: STARTED BEFORE START OF IBANDRONIC ACID

REACTIONS (1)
  - INTERVERTEBRAL DISC COMPRESSION [None]
